FAERS Safety Report 8948637 (Version 1)
Quarter: 2012Q4

REPORT INFORMATION
  Report Type: 
  Country: PL (occurrence: PL)
  Receive Date: 20121206
  Receipt Date: 20121206
  Transmission Date: 20130627
  Serious: Yes (Other)
  Sender: FDA-Public Use
  Company Number: PHHY2012PL110263

PATIENT
  Sex: Male

DRUGS (27)
  1. NEORAL [Suspect]
     Indication: RENAL TRANSPLANT
     Dosage: 350 mg, BID
  2. NEORAL [Suspect]
     Dosage: 100 mg+75 mg
  3. NEORAL [Suspect]
     Dosage: 50 mg, BID
  4. NEORAL [Suspect]
     Dosage: 25 mg, BID
     Dates: start: 20100804
  5. MYFORTIC [Concomitant]
     Dosage: 720 mg, BID
  6. ENCORTON [Concomitant]
     Dosage: 5 mg, UNK
  7. CERTICAN [Concomitant]
     Dosage: 0.75 mg, BID
  8. CERTICAN [Concomitant]
     Dosage: mg + 0.75 mg / 2 x 0.75 mg, alternately every other day
     Dates: start: 20090907
  9. AMLOZEK [Concomitant]
     Dosage: 20 mg, BID
  10. POLPRAZOL [Concomitant]
     Dosage: 20 mg, BID
  11. BISOCARD [Concomitant]
  12. VALSARTAN [Concomitant]
  13. IPOREL [Concomitant]
  14. FUROSEMID [Concomitant]
  15. TERTENSIF - SLOW RELEASE [Concomitant]
  16. DIUVER [Concomitant]
  17. MONONIT [Concomitant]
  18. ACARD [Concomitant]
  19. ATORVASTATINE [Concomitant]
     Dates: start: 200812
  20. FURAGIN [Concomitant]
  21. HEVIRAN [Concomitant]
  22. GABAPENTIN [Concomitant]
  23. MILURIT [Concomitant]
  24. CALCIUM CARBONATE [Concomitant]
  25. ALFADIOL [Concomitant]
  26. SORBIFER DURULES [Concomitant]
  27. SODIUM BICARBONATE [Concomitant]

REACTIONS (31)
  - Coronary artery disease [Unknown]
  - Ureteral necrosis [Unknown]
  - Urinary fistula [Unknown]
  - Ileus paralytic [Unknown]
  - Osteopenia [Unknown]
  - Renal injury [Unknown]
  - Haemorrhoids [Unknown]
  - Gastric mucosal hypertrophy [Unknown]
  - Gastritis haemorrhagic [Unknown]
  - Gastric polyps [Unknown]
  - Gastritis erosive [Unknown]
  - Gastric mucosa erythema [Unknown]
  - Candidiasis [Recovered/Resolved]
  - Complications of transplanted kidney [Unknown]
  - Urinary tract infection [Unknown]
  - Enterobacter infection [Unknown]
  - Pseudomonas infection [Unknown]
  - Anaemia [Unknown]
  - Renal cyst [Unknown]
  - Respiratory tract infection [Unknown]
  - Arthropod bite [Unknown]
  - Helicobacter infection [Recovered/Resolved]
  - Herpes zoster [Unknown]
  - Neuralgia [Unknown]
  - Hypoaesthesia [Unknown]
  - Nephropathy toxic [Unknown]
  - Haematuria [Unknown]
  - Toxicity to various agents [Unknown]
  - Hydronephrosis [Unknown]
  - Gastrointestinal oedema [Unknown]
  - Nephrosclerosis [Unknown]
